FAERS Safety Report 5921108-5 (Version None)
Quarter: 2008Q4

REPORT INFORMATION
  Report Type: 
  Country: None (occurrence: None)
  Receive Date: 20081016
  Receipt Date: 20081003
  Transmission Date: 20090506
  Serious: Yes (Other)
  Sender: FDA-Public Use
  Company Number: FR-ELI_LILLY_AND_COMPANY-FR200810000909

PATIENT
  Age: 61 Year
  Sex: Female

DRUGS (2)
  1. CYMBALTA [Suspect]
     Indication: BACK PAIN
     Dosage: 60 MG, DAILY (1/D)
     Route: 048
     Dates: start: 20080701, end: 20080701
  2. ANALGESICS [Concomitant]
     Indication: BACK PAIN
     Dosage: UNK, UNKNOWN
     Route: 048

REACTIONS (1)
  - HEPATOCELLULAR INJURY [None]
